FAERS Safety Report 9188595 (Version 2)
Quarter: 2013Q2

REPORT INFORMATION
  Report Type: Spontaneous
  Country: US (occurrence: US)
  Receive Date: 20130325
  Receipt Date: 20130418
  Transmission Date: 20140414
  Serious: Yes (Disabling, Other)
  Sender: FDA-Public Use
  Company Number: US-PFIZER INC-2013093010

PATIENT
  Age: 51 Year
  Sex: Female
  Weight: 86.17 kg

DRUGS (7)
  1. XANAX [Suspect]
     Indication: PANIC ATTACK
     Dosage: UNK
     Dates: start: 1994
  2. ZOLOFT [Suspect]
     Indication: DEPRESSION
     Dosage: UNK
     Dates: start: 2011
  3. SERTRALINE HCL [Suspect]
     Indication: DEPRESSION
     Dosage: 2-50 MG TABLETS IN THE MORNING AND 1-50 MG TABLET IN THE EVENINGS 2X/DAY
  4. ALPRAZOLAM [Suspect]
     Indication: NERVOUSNESS
     Dosage: 0.5 MG, 3X/DAY
  5. JANUVIA [Concomitant]
     Indication: DIABETES MELLITUS
     Dosage: 50 MG, DAILY
  6. ULTRAM [Concomitant]
     Indication: NECK PAIN
     Dosage: 50 MG, DAILY
     Dates: end: 201302
  7. ULTRAM [Concomitant]
     Indication: BACK PAIN

REACTIONS (5)
  - Road traffic accident [Unknown]
  - Neck injury [Unknown]
  - Activities of daily living impaired [Unknown]
  - Pain [Unknown]
  - Arthralgia [Unknown]
